FAERS Safety Report 8116146-0 (Version None)
Quarter: 2012Q1

REPORT INFORMATION
  Report Type: 
  Country: None (occurrence: None)
  Receive Date: 20120206
  Receipt Date: 20120126
  Transmission Date: 20120608
  Serious: Yes (Hospitalization)
  Sender: FDA-Public Use
  Company Number: US-MUTUAL PHARMACEUTICAL COMPANY, INC.-CLCY20120028

PATIENT
  Sex: Female
  Weight: 73.548 kg

DRUGS (9)
  1. QUINAPRIL [Concomitant]
     Indication: HYPERTENSION
     Route: 065
  2. COLCRYS [Suspect]
     Indication: GOUT
     Route: 048
     Dates: start: 20110901, end: 20110901
  3. COLCRYS [Suspect]
     Route: 048
     Dates: start: 20111201, end: 20111201
  4. ULORIC [Concomitant]
     Indication: GOUT
     Route: 065
  5. CARTIA XT [Concomitant]
     Indication: HYPERTENSION
     Route: 065
  6. COLCRYS [Suspect]
     Route: 048
     Dates: start: 20111101, end: 20111101
  7. ESTROGENIC SUBSTANCE [Concomitant]
     Indication: HORMONE REPLACEMENT THERAPY
     Route: 065
  8. ZEBETA [Concomitant]
     Indication: HYPERTENSION
     Route: 065
  9. ZETIA [Concomitant]
     Indication: BLOOD CHOLESTEROL INCREASED
     Route: 065

REACTIONS (2)
  - GASTROENTERITIS [None]
  - DIARRHOEA HAEMORRHAGIC [None]
